FAERS Safety Report 7826619-3 (Version None)
Quarter: 2011Q4

REPORT INFORMATION
  Report Type: 
  Country: None (occurrence: None)
  Receive Date: 20111018
  Receipt Date: 20111006
  Transmission Date: 20120403
  Serious: Yes (Other)
  Sender: FDA-Public Use
  Company Number: 1000024027

PATIENT
  Age: 43 Year
  Sex: Female

DRUGS (5)
  1. LOVASTATIN (LOVASTATIN) (LOVASTATIN) [Concomitant]
  2. LISINOPRIL [Concomitant]
  3. METOPROLOL SUCCINATE [Concomitant]
  4. BENADRYL (DIPHENHYDRAMINE) (DIPHENHYDRAMINE) [Concomitant]
  5. ESCITALOPRAM [Suspect]
     Indication: DEPRESSION
     Dosage: 20 MG (20 MG, 1 IN 1 D), ORAL
     Route: 048
     Dates: start: 20110808

REACTIONS (4)
  - NIGHTMARE [None]
  - CONVULSION [None]
  - FALL [None]
  - GRAND MAL CONVULSION [None]
